FAERS Safety Report 4599623-9 (Version None)
Quarter: 2005Q1

REPORT INFORMATION
  Report Type: 
  Country: None (occurrence: None)
  Receive Date: 20050303
  Receipt Date: 20050215
  Transmission Date: 20050727
  Serious: No
  Sender: FDA-Public Use
  Company Number: US_0502113075

PATIENT
  Age: 6 Year
  Sex: Male

DRUGS (1)
  1. STRATTERA [Suspect]
     Dates: start: 20040901, end: 20050201

REACTIONS (1)
  - LIVER FUNCTION TEST ABNORMAL [None]
